FAERS Safety Report 7823121-X (Version None)
Quarter: 2011Q4

REPORT INFORMATION
  Report Type: 
  Country: None (occurrence: None)
  Receive Date: 20111019
  Receipt Date: 20111006
  Transmission Date: 20120403
  Serious: Yes (Hospitalization)
  Sender: FDA-Public Use
  Company Number: BR-BIOGENIDEC-2011BI031889

PATIENT
  Age: 67 Year
  Sex: Female
  Weight: 62 kg

DRUGS (5)
  1. AVONEX [Suspect]
     Indication: MULTIPLE SCLEROSIS
     Route: 030
     Dates: start: 20070101, end: 20110801
  2. DEXA-CITONEURIN [Concomitant]
     Indication: PAIN
     Route: 030
  3. MEDICATIONS (NOS) [Concomitant]
     Indication: PAIN
  4. MEDICATIONS (NOS) [Concomitant]
     Indication: OSTEOARTHRITIS
  5. VITAMINS (NOS) [Concomitant]
     Indication: PRODUCT USED FOR UNKNOWN INDICATION

REACTIONS (11)
  - NODULE [None]
  - CHOKING [None]
  - LOW DENSITY LIPOPROTEIN INCREASED [None]
  - INJECTION SITE PAIN [None]
  - THROAT TIGHTNESS [None]
  - GAIT DISTURBANCE [None]
  - ABASIA [None]
  - MULTIPLE SCLEROSIS RELAPSE [None]
  - SUBCUTANEOUS ABSCESS [None]
  - WEIGHT DECREASED [None]
  - MOBILITY DECREASED [None]
